FAERS Safety Report 24684775 (Version 1)
Quarter: 2024Q4

REPORT INFORMATION
  Report Type: Other
  Country: CA (occurrence: CA)
  Receive Date: 20241202
  Receipt Date: 20241202
  Transmission Date: 20250115
  Serious: Yes (Death, Other)
  Sender: APOTEX
  Company Number: CA-APOTEX-2024AP019102

PATIENT
  Sex: Male

DRUGS (1)
  1. POMALIDOMIDE [Suspect]
     Active Substance: POMALIDOMIDE
     Indication: Plasma cell myeloma
     Dosage: 2 MILLIGRAM, QD
     Route: 048
     Dates: start: 20230309

REACTIONS (1)
  - Death [Fatal]
